FAERS Safety Report 6240169-X (Version None)
Quarter: 2009Q2

REPORT INFORMATION
  Report Type: 
  Country: None (occurrence: None)
  Receive Date: 20090618
  Receipt Date: 20090618
  Transmission Date: 20091009
  Serious: Yes (Other)
  Sender: FDA-Public Use
  Company Number: None

PATIENT
  Age: 35 Year
  Sex: Female
  Weight: 59.4212 kg

DRUGS (2)
  1. CYMBALTA [Suspect]
     Indication: ANXIETY
     Dates: start: 20080101, end: 20090612
  2. CYMBALTA [Suspect]
     Indication: DEPRESSION
     Dates: start: 20080101, end: 20090612

REACTIONS (7)
  - CHILLS [None]
  - DIARRHOEA [None]
  - DIZZINESS [None]
  - HEADACHE [None]
  - NAUSEA [None]
  - SENSORY DISTURBANCE [None]
  - WITHDRAWAL SYNDROME [None]
